FAERS Safety Report 16881660 (Version 1)
Quarter: 2019Q4

REPORT INFORMATION
  Report Type: Spontaneous
  Country: US (occurrence: US)
  Receive Date: 20190808
  Receipt Date: 20190808
  Transmission Date: 20200122
  Serious: Yes (Hospitalization, Other)
  Sender: FDA-Public Use
  Company Number: None

PATIENT
  Age: 58 Year
  Sex: Male

DRUGS (1)
  1. MELOXICAM. [Suspect]
     Active Substance: MELOXICAM
     Route: 048
     Dates: start: 20190416, end: 20190423

REACTIONS (2)
  - Haemorrhage [None]
  - Gastric haemorrhage [None]

NARRATIVE: CASE EVENT DATE: 20190423
